FAERS Safety Report 8057658-8 (Version None)
Quarter: 2012Q1

REPORT INFORMATION
  Report Type: 
  Country: None (occurrence: None)
  Receive Date: 20120120
  Receipt Date: 20120109
  Transmission Date: 20120608
  Serious: No
  Sender: FDA-Public Use
  Company Number: US-BIOGENIDEC-2012BI001039

PATIENT
  Sex: Female

DRUGS (2)
  1. IRON [Concomitant]
     Indication: ANAEMIA
  2. TYSABRI [Suspect]
     Indication: MULTIPLE SCLEROSIS
     Route: 042
     Dates: start: 20070416

REACTIONS (6)
  - HYPERTENSION [None]
  - WHITE BLOOD CELL COUNT DECREASED [None]
  - ANAEMIA [None]
  - HEART RATE INCREASED [None]
  - TRANSFUSION [None]
  - HEADACHE [None]
